FAERS Safety Report 4290803-9 (Version None)
Quarter: 2004Q1

REPORT INFORMATION
  Report Type: 
  Country: None (occurrence: None)
  Receive Date: 20040209
  Receipt Date: 20040123
  Transmission Date: 20041129
  Serious: Yes (Hospitalization)
  Sender: FDA-Public Use
  Company Number: DSA_23728_2003

PATIENT
  Age: 83 Year
  Sex: Female

DRUGS (6)
  1. ENALAPRIL MALEATE [Suspect]
     Indication: HYPERTENSION
     Dosage: 5 MG Q DAY PO
     Route: 048
     Dates: start: 20030823, end: 20031125
  2. APRINDINE HYDROCHLORIDE [Suspect]
     Indication: ATRIAL FIBRILLATION
     Dosage: 40 MG Q DAY PO
     Route: 048
     Dates: start: 20030824, end: 20031125
  3. RANITIDINE HYDROCHLORIDE [Suspect]
     Indication: GASTRITIS
     Dosage: 150 MG Q DAY PO
     Route: 048
     Dates: start: 20030823, end: 20031125
  4. CARVEDILOL [Concomitant]
  5. METILDIGOXIN [Concomitant]
  6. FUROSEMIDE [Concomitant]

REACTIONS (11)
  - AGRANULOCYTOSIS [None]
  - C-REACTIVE PROTEIN INCREASED [None]
  - FALL [None]
  - HAEMATOCRIT DECREASED [None]
  - HAEMOGLOBIN DECREASED [None]
  - INFLAMMATION [None]
  - LYMPHOCYTE STIMULATION TEST POSITIVE [None]
  - MONOCYTE COUNT INCREASED [None]
  - NEUTROPHIL COUNT DECREASED [None]
  - PYREXIA [None]
  - WHITE BLOOD CELL COUNT DECREASED [None]
